FAERS Safety Report 20853917 (Version 1)
Quarter: 2022Q2

REPORT INFORMATION
  Report Type: Spontaneous
  Country: JP (occurrence: JP)
  Receive Date: 20220520
  Receipt Date: 20220520
  Transmission Date: 20220721
  Serious: Yes (Other)
  Sender: FDA-Public Use
  Company Number: JP-ONO-2022JP013544

PATIENT
  Sex: Female

DRUGS (2)
  1. SITAGLIPTIN [Suspect]
     Active Substance: SITAGLIPTIN
     Indication: Type 2 diabetes mellitus
     Dosage: 50 MG, EVERYDAY
     Route: 048
  2. INSULIN NOS [Concomitant]
     Active Substance: INSULIN NOS
     Dosage: UNK
     Route: 065

REACTIONS (10)
  - Uterine haemorrhage [Unknown]
  - Retinal haemorrhage [Unknown]
  - Gastrointestinal pain [Unknown]
  - Cystitis [Unknown]
  - Vaginal discharge [Unknown]
  - Diabetic retinopathy [Unknown]
  - Abdominal discomfort [Unknown]
  - Abdominal distension [Unknown]
  - Stomatitis [Unknown]
  - Peripheral swelling [Unknown]

NARRATIVE: CASE EVENT DATE: 20220101
